FAERS Safety Report 22289713 (Version 2)
Quarter: 2023Q2

REPORT INFORMATION
  Report Type: Spontaneous
  Country: US (occurrence: US)
  Receive Date: 20230505
  Receipt Date: 20230512
  Transmission Date: 20230721
  Serious: No
  Sender: FDA-Public Use
  Company Number: US-PFIZER INC-PV202300080059

PATIENT
  Sex: Male

DRUGS (2)
  1. GEMCITABINE HYDROCHLORIDE [Suspect]
     Active Substance: GEMCITABINE HYDROCHLORIDE
     Dosage: UNK, EVERY WEEK FOR FIRST 3 WEEKS OF 4-WEEK CYCLE
  2. ABRAXANE [Suspect]
     Active Substance: PACLITAXEL
     Dosage: UNK, EVERY WEEK FOR FIRST 3 WEEKS OF 4-WEEK CYCLE

REACTIONS (1)
  - Neoplasm progression [Unknown]
